FAERS Safety Report 4667634-0 (Version None)
Quarter: 2005Q2

REPORT INFORMATION
  Report Type: 
  Country: None (occurrence: None)
  Receive Date: 20050520
  Receipt Date: 20040702
  Transmission Date: 20051028
  Serious: Yes (Other)
  Sender: FDA-Public Use
  Company Number: PHNU2004DE02379

PATIENT
  Sex: Male

DRUGS (1)
  1. AREDIA [Suspect]
     Dosage: 90 MG, QMO
     Dates: start: 19981101, end: 20040501

REACTIONS (2)
  - DISCOMFORT [None]
  - OSTEONECROSIS [None]
